FAERS Safety Report 10026877 (Version 3)
Quarter: 2014Q2

REPORT INFORMATION
  Report Type: Spontaneous
  Country: US (occurrence: US)
  Receive Date: 20140321
  Receipt Date: 20140421
  Transmission Date: 20141212
  Serious: Yes (Hospitalization)
  Sender: FDA-Public Use
  Company Number: US-JNJFOC-20140308395

PATIENT
  Sex: Male
  Weight: 43.5 kg

DRUGS (10)
  1. ZYTIGA [Suspect]
     Indication: PROSTATE CANCER
     Route: 048
     Dates: start: 20140327
  2. ZYTIGA [Suspect]
     Indication: PROSTATE CANCER
     Dosage: 250 MG 4 TABLETS IN A DAY
     Route: 048
     Dates: start: 20140121, end: 20140302
  3. ASPIRIN [Concomitant]
     Route: 048
  4. CARDIZEM CD [Concomitant]
     Route: 065
  5. NEXIUM [Concomitant]
     Dosage: BEFORE MEAL (1 HORE BEFORE EATING)
     Route: 048
  6. HYDROCHLOROTHIAZIDE [Concomitant]
     Route: 048
  7. IMODIUM A-D [Concomitant]
     Route: 048
  8. REGLAN [Concomitant]
     Dosage: BEFORE MEALS AND BEDTIME
     Route: 048
  9. SINGULAIR [Concomitant]
     Dosage: IN THE EVENING
     Route: 065
  10. DELTASONE [Concomitant]
     Dosage: WITH FOOD
     Route: 048

REACTIONS (1)
  - Dysphagia [Unknown]
